FAERS Safety Report 9120675 (Version 2)
Quarter: 2013Q1

REPORT INFORMATION
  Report Type: Spontaneous
  Country: JP (occurrence: JP)
  Receive Date: 20130226
  Receipt Date: 20130308
  Transmission Date: 20140127
  Serious: Yes (Other)
  Sender: FDA-Public Use
  Company Number: JP-009507513-1302JPN011282

PATIENT
  Age: 61 Year
  Sex: Male

DRUGS (6)
  1. PEPCID RPD [Suspect]
     Dosage: 20 MG, UID/QD
     Route: 048
  2. ALFACALCIDOL [Concomitant]
     Dosage: UNK
  3. FOSRENOL [Concomitant]
     Dosage: UNK
     Route: 048
  4. ACETYLCYSTEINE [Concomitant]
  5. REGPARA [Concomitant]
     Dosage: UNK
     Route: 048
  6. FEBURIC [Concomitant]
     Route: 048

REACTIONS (1)
  - Tendon rupture [Unknown]
